FAERS Safety Report 7052438-4 (Version None)
Quarter: 2010Q4

REPORT INFORMATION
  Report Type: 
  Country: None (occurrence: None)
  Receive Date: 20101019
  Receipt Date: 20101013
  Transmission Date: 20110411
  Serious: Yes (Other)
  Sender: FDA-Public Use
  Company Number: FR-BAXTER-2010BH025869

PATIENT
  Age: 63 Year
  Sex: Female

DRUGS (2)
  1. HOLOXAN BAXTER [Suspect]
     Indication: SARCOMA UTERUS
     Route: 042
     Dates: start: 20100818, end: 20100819
  2. DOXORUBICIN HCL [Concomitant]
     Indication: SARCOMA UTERUS
     Route: 042
     Dates: start: 20100818, end: 20100823

REACTIONS (3)
  - GRAND MAL CONVULSION [None]
  - MALAISE [None]
  - MYOCLONUS [None]
